FAERS Safety Report 16428478 (Version 1)
Quarter: 2019Q2

REPORT INFORMATION
  Report Type: Spontaneous
  Country: ES (occurrence: ES)
  Receive Date: 20190613
  Receipt Date: 20190613
  Transmission Date: 20190711
  Serious: Yes (Other)
  Sender: FDA-Public Use
  Company Number: ES-ALLERGAN-1924779US

PATIENT
  Sex: Male
  Weight: 73 kg

DRUGS (1)
  1. PYLERA [Suspect]
     Active Substance: BISMUTH SUBCITRATE POTASSIUM\METRONIDAZOLE\TETRACYCLINE HYDROCHLORIDE
     Indication: GASTRITIS
     Route: 048
     Dates: start: 20190603, end: 20190604

REACTIONS (4)
  - Dyspnoea [Recovered/Resolved]
  - Nervousness [Recovered/Resolved]
  - Malaise [Recovered/Resolved]
  - Faeces discoloured [Recovered/Resolved]

NARRATIVE: CASE EVENT DATE: 20190603
